FAERS Safety Report 7652856-7 (Version None)
Quarter: 2011Q3

REPORT INFORMATION
  Report Type: 
  Country: None (occurrence: None)
  Receive Date: 20110803
  Receipt Date: 20110726
  Transmission Date: 20111222
  Serious: No
  Sender: FDA-Public Use
  Company Number: US-JNJFOC-20110711405

PATIENT
  Sex: Male
  Weight: 106.14 kg

DRUGS (4)
  1. INVEGA SUSTENNA [Suspect]
     Indication: ILL-DEFINED DISORDER
     Route: 030
     Dates: start: 20100315
  2. BENADRYL [Concomitant]
     Dosage: AT BEDTIME
     Route: 048
     Dates: start: 20100301
  3. DEPAKENE [Concomitant]
     Dosage: AT BEDTIME
     Route: 048
     Dates: start: 20100303
  4. ZYPREXA [Concomitant]
     Dosage: AT BEDTIME
     Route: 048
     Dates: start: 20100303

REACTIONS (1)
  - INJECTION SITE NODULE [None]
